FAERS Safety Report 10055532 (Version 2)
Quarter: 2014Q2

REPORT INFORMATION
  Report Type: Report from Study
  Country: US (occurrence: US)
  Receive Date: 20140403
  Receipt Date: 20140612
  Transmission Date: 20141212
  Serious: Yes (Death, Hospitalization)
  Sender: FDA-Public Use
  Company Number: US-ROCHE-1373366

PATIENT
  Sex: Female

DRUGS (3)
  1. XELODA [Suspect]
     Indication: BREAST CANCER
     Route: 048
     Dates: start: 20140305, end: 20140318
  2. SYNTHROID [Concomitant]
     Indication: HYPOTHYROIDISM
  3. AMBIEN [Concomitant]
     Dosage: OCCASIONALLY, NOT A LOT
     Route: 065

REACTIONS (5)
  - Death [Fatal]
  - Tongue blistering [Recovering/Resolving]
  - Blood pressure decreased [Recovering/Resolving]
  - Hyperaesthesia [Recovering/Resolving]
  - Hyperaesthesia [Recovering/Resolving]
